FAERS Safety Report 15774393 (Version 1)
Quarter: 2018Q4

REPORT INFORMATION
  Report Type: Spontaneous
  Country: PL (occurrence: PL)
  Receive Date: 20181229
  Receipt Date: 20181229
  Transmission Date: 20190205
  Serious: Yes (Death, Other)
  Sender: FDA-Public Use
  Company Number: PL-AUROBINDO-AUR-APL-2018-063773

PATIENT
  Age: 55 Year
  Sex: Female

DRUGS (2)
  1. ILOPROST. [Suspect]
     Active Substance: ILOPROST
     Indication: PULMONARY ARTERIAL HYPERTENSION
     Dosage: 30 MICROGRAM, DAILY (5 MICROGRAMS 6 TIMES A DAY)
     Route: 055
     Dates: start: 20150629, end: 20180630
  2. SILDENAFIL. [Suspect]
     Active Substance: SILDENAFIL
     Indication: PULMONARY ARTERIAL HYPERTENSION
     Dosage: 20 MILLIGRAM, 3 TIMES A DAY
     Route: 065
     Dates: start: 20150629

REACTIONS (2)
  - Death [Fatal]
  - Drug ineffective [Unknown]
